FAERS Safety Report 15489354 (Version 1)
Quarter: 2018Q4

REPORT INFORMATION
  Report Type: Spontaneous
  Country: US (occurrence: US)
  Receive Date: 20181011
  Receipt Date: 20181011
  Transmission Date: 20190205
  Serious: Yes (Other)
  Sender: FDA-Public Use
  Company Number: US-MYLANLABS-2018M1072886

PATIENT
  Age: 61 Year
  Sex: Female

DRUGS (1)
  1. MITOMYCIN. [Suspect]
     Active Substance: MITOMYCIN
     Indication: CONJUNCTIVAL MELANOMA
     Route: 047

REACTIONS (4)
  - Dry eye [Unknown]
  - Corneal degeneration [Recovered/Resolved]
  - Visual impairment [Recovering/Resolving]
  - Limbal stem cell deficiency [Unknown]
